FAERS Safety Report 5374059-1 (Version None)
Quarter: 2007Q2

REPORT INFORMATION
  Report Type: 
  Country: None (occurrence: None)
  Receive Date: 20070627
  Receipt Date: 20070614
  Transmission Date: 20071010
  Serious: Yes (Disabling, Other)
  Sender: FDA-Public Use
  Company Number: 2006-03-1879

PATIENT
  Age: 54 Year
  Sex: Female
  Weight: 110.6777 kg

DRUGS (18)
  1. PEG-INTRON [Suspect]
     Indication: HEPATITIS C
     Dosage: 150 MCG;QW;SC
     Route: 058
     Dates: start: 20060201, end: 20060301
  2. RIBAVIRIN [Suspect]
     Indication: HEPATITIS C
     Dosage: 400 MG;QD;PO
     Route: 048
     Dates: start: 20060201, end: 20060301
  3. AMBIEN [Concomitant]
  4. ......... [Concomitant]
  5. BENICAR [Concomitant]
  6. FLONASE [Concomitant]
  7. IBUPROFEN [Concomitant]
  8. LORAZEPAM [Concomitant]
  9. PEPCID [Concomitant]
  10. PROZAC [Concomitant]
  11. SKELAXIN [Concomitant]
  12. LOMOTIL [Concomitant]
  13. TOPROL-XL [Concomitant]
  14. HYDROCHLOROTHIAZIDE [Concomitant]
  15. ZEGERID [Concomitant]
  16. SYNTHROID [Concomitant]
  17. IMITREX [Concomitant]
  18. TYLENOL W/ CODEINE NO. 3 [Concomitant]

REACTIONS (39)
  - ABNORMAL FAECES [None]
  - ANXIETY [None]
  - ASTHENIA [None]
  - BLISTER [None]
  - BURNING SENSATION [None]
  - CHROMATURIA [None]
  - CONTUSION [None]
  - CRYING [None]
  - DECREASED APPETITE [None]
  - DIARRHOEA [None]
  - DISTURBANCE IN ATTENTION [None]
  - DIZZINESS [None]
  - DRY MOUTH [None]
  - EPISTAXIS [None]
  - EYE PAIN [None]
  - FAECES PALE [None]
  - FALL [None]
  - FATIGUE [None]
  - HEADACHE [None]
  - HYPERHIDROSIS [None]
  - HYPOACUSIS [None]
  - IMPAIRED WORK ABILITY [None]
  - INJECTION SITE ERYTHEMA [None]
  - JOINT SWELLING [None]
  - LETHARGY [None]
  - MENISCUS LESION [None]
  - MIGRAINE [None]
  - MOUTH HAEMORRHAGE [None]
  - NAUSEA [None]
  - PAIN [None]
  - PHOTOPHOBIA [None]
  - POLLAKIURIA [None]
  - RECTAL HAEMORRHAGE [None]
  - SLEEP DISORDER [None]
  - SOMNOLENCE [None]
  - SUICIDAL IDEATION [None]
  - URINARY INCONTINENCE [None]
  - VOMITING [None]
  - WEIGHT DECREASED [None]
